FAERS Safety Report 4884172-0 (Version None)
Quarter: 2006Q1

REPORT INFORMATION
  Report Type: 
  Country: None (occurrence: None)
  Receive Date: 20060118
  Receipt Date: 20051005
  Transmission Date: 20060701
  Serious: Yes (Death, Hospitalization)
  Sender: FDA-Public Use
  Company Number: US-MERCK-0510USA04289

PATIENT
  Age: 78 Year
  Sex: Female
  Weight: 50 kg

DRUGS (3)
  1. VIOXX [Suspect]
     Indication: ARTHRITIS
     Route: 048
     Dates: start: 20010101, end: 20041001
  2. NORVASC [Concomitant]
     Route: 065
  3. COZAAR [Concomitant]
     Route: 065

REACTIONS (5)
  - ACUTE PRERENAL FAILURE [None]
  - DEATH [None]
  - FALL [None]
  - HEAD INJURY [None]
  - ISCHAEMIC STROKE [None]
